FAERS Safety Report 19949593 (Version 1)
Quarter: 2021Q4

REPORT INFORMATION
  Report Type: Spontaneous
  Country: US (occurrence: US)
  Receive Date: 20211012
  Receipt Date: 20211012
  Transmission Date: 20220303
  Serious: Yes (Death)
  Sender: FDA-Public Use
  Company Number: None

PATIENT
  Sex: Female
  Weight: 56.25 kg

DRUGS (12)
  1. LORBRENA [Suspect]
     Active Substance: LORLATINIB
     Route: 048
  2. ACETAMINOPHEN [Concomitant]
     Active Substance: ACETAMINOPHEN
  3. DEXAMETHASONE [Concomitant]
     Active Substance: DEXAMETHASONE
  4. BACTRIM DS [Concomitant]
     Active Substance: SULFAMETHOXAZOLE\TRIMETHOPRIM
  5. DIAZEPAM [Concomitant]
     Active Substance: DIAZEPAM
  6. FOLIC ACID [Concomitant]
     Active Substance: FOLIC ACID
  7. HYDROCODONE-HOMATROPINE [Concomitant]
  8. BARIUM SULFATE [Concomitant]
     Active Substance: BARIUM SULFATE
  9. ALBUTEROL SULFATE [Concomitant]
     Active Substance: ALBUTEROL SULFATE
  10. BENZONATATE [Concomitant]
     Active Substance: BENZONATATE
  11. DRONABINOL [Concomitant]
     Active Substance: DRONABINOL
  12. ONDANSETRON [Concomitant]
     Active Substance: ONDANSETRON

REACTIONS (1)
  - Death [None]
